FAERS Safety Report 6842860-0 (Version None)
Quarter: 2010Q3

REPORT INFORMATION
  Report Type: 
  Country: None (occurrence: None)
  Receive Date: 20100714
  Receipt Date: 20070809
  Transmission Date: 20110219
  Serious: No
  Sender: FDA-Public Use
  Company Number: US-PFIZER INC-2007067188

PATIENT
  Sex: Female
  Weight: 63.6 kg

DRUGS (5)
  1. CHANTIX [Suspect]
     Indication: SMOKING CESSATION THERAPY
     Dates: start: 20070101
  2. ZOLOFT [Concomitant]
  3. MIRAPEX [Concomitant]
  4. IBUPROFEN [Concomitant]
  5. NEXIUM [Concomitant]
     Indication: GASTRIC DISORDER

REACTIONS (2)
  - ABDOMINAL DISTENSION [None]
  - NAUSEA [None]
